FAERS Safety Report 12507593 (Version 1)
Quarter: 2016Q2

REPORT INFORMATION
  Report Type: Spontaneous
  Country: US (occurrence: None)
  Receive Date: 20160628
  Receipt Date: 20160628
  Transmission Date: 20160815
  Serious: Yes (Hospitalization)
  Sender: FDA-Public Use
  Company Number: None

PATIENT
  Age: 76 Year
  Sex: Female
  Weight: 61.69 kg

DRUGS (17)
  1. ESTRADIOL. [Concomitant]
     Active Substance: ESTRADIOL
  2. STOOL SOFTENER [Concomitant]
     Active Substance: DOCUSATE CALCIUM
  3. CINNAMON. [Concomitant]
     Active Substance: CINNAMON
  4. PROBIOTIC [Concomitant]
     Active Substance: PROBIOTICS NOS
  5. VITAMIN B COMPLEX [Concomitant]
     Active Substance: CYANOCOBALAMIN\DEXPANTHENOL\NIACINAMIDE\PYRIDOXINE HYDROCHLORIDE\RIBOFLAVIN 5^-PHOSPHATE SODIUM\THIAMINE HYDROCHLORIDE\VITAMIN B COMPLEX
  6. HCTZ [Concomitant]
     Active Substance: HYDROCHLOROTHIAZIDE
  7. OMEPRAZOLE. [Concomitant]
     Active Substance: OMEPRAZOLE
  8. OMEGA-3 KRILL OIL [Concomitant]
  9. FLAXSEED [Concomitant]
     Active Substance: FLAX SEED
  10. MULTIVITAMIN [Concomitant]
     Active Substance: VITAMINS
  11. TRAZODONE HYDROCHLORIDE. [Concomitant]
     Active Substance: TRAZODONE HYDROCHLORIDE
  12. CYSTEX PLUS [Concomitant]
     Active Substance: METHENAMINE\SODIUM SALICYLATE
  13. RED YEAST RICE [Concomitant]
     Active Substance: DIETARY SUPPLEMENT
  14. CLONIDINE TRANSDERMAL SYSTEM [Suspect]
     Active Substance: CLONIDINE
     Route: 062
     Dates: start: 2010
  15. CLONIDINE PATCH [Concomitant]
     Active Substance: CLONIDINE
  16. XANAX [Concomitant]
     Active Substance: ALPRAZOLAM
  17. HAIR, SKIN + NAILS [Concomitant]
     Active Substance: MINERALS\VITAMINS

REACTIONS (5)
  - Chest pain [None]
  - Heart rate decreased [None]
  - Product quality issue [None]
  - Incorrect dose administered by device [None]
  - Blood pressure decreased [None]

NARRATIVE: CASE EVENT DATE: 20160510
